FAERS Safety Report 9681997 (Version 2)
Quarter: 2013Q4

REPORT INFORMATION
  Report Type: Report from Study
  Country: US (occurrence: US)
  Receive Date: 20131111
  Receipt Date: 20131111
  Transmission Date: 20140711
  Serious: Yes (Death, Other)
  Sender: FDA-Public Use
  Company Number: US-ACTELION-A-NJ2013-90206

PATIENT
  Age: 84 Year
  Sex: Female

DRUGS (1)
  1. TRACLEER [Suspect]
     Indication: PULMONARY ARTERIAL HYPERTENSION
     Dosage: UNK
     Route: 048
     Dates: end: 20131016

REACTIONS (6)
  - Death [Fatal]
  - Cervical vertebral fracture [Unknown]
  - Fall [Unknown]
  - Abdominal pain [Unknown]
  - Nausea [Unknown]
  - Asthenia [Unknown]
